FAERS Safety Report 18701089 (Version 1)
Quarter: 2021Q1

REPORT INFORMATION
  Report Type: Spontaneous
  Country: US (occurrence: US)
  Receive Date: 20210105
  Receipt Date: 20210105
  Transmission Date: 20210419
  Serious: Yes (Other)
  Sender: FDA-Public Use
  Company Number: US-ACCORD-213374

PATIENT
  Age: 39 Year
  Sex: Male

DRUGS (3)
  1. SIROLIMUS. [Concomitant]
     Active Substance: SIROLIMUS
     Indication: IMMUNOSUPPRESSANT DRUG THERAPY
  2. PREDNISONE. [Concomitant]
     Active Substance: PREDNISONE
     Indication: IMMUNOSUPPRESSANT DRUG THERAPY
  3. MYCOPHENOLIC ACID. [Suspect]
     Active Substance: MYCOPHENOLIC ACID
     Indication: IMMUNOSUPPRESSANT DRUG THERAPY

REACTIONS (7)
  - Upper gastrointestinal haemorrhage [Unknown]
  - Portal hypertensive gastropathy [Unknown]
  - Haemoglobin decreased [Unknown]
  - Apoptosis [Unknown]
  - Gastrointestinal injury [Unknown]
  - Duodenitis [Unknown]
  - Duodenal ulcer haemorrhage [Unknown]
